FAERS Safety Report 9033245 (Version 1)
Quarter: 2013Q1

REPORT INFORMATION
  Report Type: Spontaneous
  Country: US (occurrence: US)
  Receive Date: 20130128
  Receipt Date: 20130128
  Transmission Date: 20140127
  Serious: Yes (Death)
  Sender: FDA-Public Use
  Company Number: PHHY2013US006753

PATIENT
  Age: 15 Year
  Sex: Female

DRUGS (7)
  1. BACLOFEN [Suspect]
  2. IBUPROFEN [Suspect]
  3. METHADONE [Suspect]
  4. SERTRALINE [Suspect]
  5. ONDANSETRON [Suspect]
  6. LEVOTHYROXINE [Suspect]
  7. ACETAMINOPHEN W/HYDROCODONE [Suspect]

REACTIONS (1)
  - Completed suicide [Fatal]
